FAERS Safety Report 5918934-5 (Version None)
Quarter: 2008Q4

REPORT INFORMATION
  Report Type: 
  Country: None (occurrence: None)
  Receive Date: 20081015
  Receipt Date: 20081013
  Transmission Date: 20090506
  Serious: Yes (Death, Hospitalization)
  Sender: FDA-Public Use
  Company Number: GB-BRISTOL-MYERS SQUIBB COMPANY-14120521

PATIENT
  Age: 4 Decade
  Sex: Male

DRUGS (4)
  1. IRBESARTAN [Suspect]
     Indication: HYPERTENSION
     Dosage: PRESCRIBED DOSE:75 MG;PATIENT TOOK 1/2 TAB;EVENT OCCURED FOLLOWING INITIAL DOSE.
     Dates: start: 20070901
  2. LISINOPRIL [Suspect]
     Indication: HYPERTENSION
     Dates: start: 20060601, end: 20060101
  3. RAMIPRIL [Suspect]
     Indication: CHEST PAIN
     Dates: start: 20060101, end: 20060101
  4. PERINDOPRIL [Suspect]
     Indication: CHEST PAIN
     Dates: start: 20060101, end: 20060101

REACTIONS (4)
  - ACUTE CORONARY SYNDROME [None]
  - DEATH [None]
  - HYPERSENSITIVITY [None]
  - LEUKOCYTOSIS [None]
